FAERS Safety Report 20362170 (Version 1)
Quarter: 2022Q1

REPORT INFORMATION
  Report Type: Spontaneous
  Country: CN (occurrence: None)
  Receive Date: 20220121
  Receipt Date: 20220121
  Transmission Date: 20220423
  Serious: Yes (Disabling)
  Sender: FDA-Public Use
  Company Number: 2022A026091

PATIENT
  Age: 6027 Day
  Sex: Male
  Weight: 115 kg

DRUGS (2)
  1. QUETIAPINE FUMARATE [Suspect]
     Active Substance: QUETIAPINE FUMARATE
     Indication: Affective disorder
     Route: 048
     Dates: start: 20211213, end: 20211228
  2. LITHIUM [Concomitant]
     Active Substance: LITHIUM
     Indication: Affective disorder
     Route: 048
     Dates: start: 20211217, end: 20220111

REACTIONS (1)
  - Hepatic function abnormal [Recovering/Resolving]

NARRATIVE: CASE EVENT DATE: 20211228
